FAERS Safety Report 24558696 (Version 2)
Quarter: 2025Q3

REPORT INFORMATION
  Report Type: Spontaneous
  Country: US (occurrence: US)
  Receive Date: 20241029
  Receipt Date: 20250923
  Transmission Date: 20251020
  Serious: Yes (Life-Threatening, Hospitalization, Other)
  Sender: GLENMARK
  Company Number: US-MLMSERVICE-20241009-PI221689-00145-1

PATIENT
  Age: 60 Year
  Sex: Male

DRUGS (6)
  1. FLUCONAZOLE [Interacting]
     Active Substance: FLUCONAZOLE
     Indication: Product used for unknown indication
     Route: 065
  2. FENTANYL [Interacting]
     Active Substance: FENTANYL
     Indication: Analgesic therapy
     Route: 065
  3. OXYCODONE [Interacting]
     Active Substance: OXYCODONE
     Indication: Analgesic therapy
     Route: 065
  4. MEPERIDINE [Interacting]
     Active Substance: MEPERIDINE
     Indication: Analgesic therapy
     Route: 065
  5. VENLAFAXINE [Interacting]
     Active Substance: VENLAFAXINE HYDROCHLORIDE
     Indication: Product used for unknown indication
     Route: 065
  6. COBICISTAT [Interacting]
     Active Substance: COBICISTAT
     Indication: HIV infection
     Route: 065

REACTIONS (4)
  - Serotonin syndrome [Recovering/Resolving]
  - Pneumonia aspiration [Recovering/Resolving]
  - Metabolic acidosis [Recovering/Resolving]
  - Drug interaction [Recovering/Resolving]
